FAERS Safety Report 15451031 (Version 2)
Quarter: 2018Q4

REPORT INFORMATION
  Report Type: Spontaneous
  Country: US (occurrence: US)
  Receive Date: 20181001
  Receipt Date: 20181012
  Transmission Date: 20190204
  Serious: No
  Sender: FDA-Public Use
  Company Number: US-PFIZER INC-2016580165

PATIENT
  Age: 64 Year
  Sex: Female

DRUGS (10)
  1. AMLODIPINE [Concomitant]
     Active Substance: AMLODIPINE BESYLATE
     Dosage: 10 MG, 1X/DAY(ONCE DAILY FOR 90 DAYS)
     Route: 048
     Dates: start: 20160713
  2. CARVEDILOL. [Concomitant]
     Active Substance: CARVEDILOL
     Dosage: 3.125 MG, 2X/DAY (TWICE DAILY WITH FOOD)
     Route: 048
     Dates: start: 20161107
  3. TRAMADOL. [Concomitant]
     Active Substance: TRAMADOL
     Dosage: 50 MG, AS NEEDED (3 TIMES A DAY AS NEEDED)
     Route: 048
     Dates: start: 20161010
  4. LYRICA [Suspect]
     Active Substance: PREGABALIN
     Dosage: 150 MG, 2X/DAY
     Route: 048
     Dates: start: 20161122
  5. LISINOPRIL. [Concomitant]
     Active Substance: LISINOPRIL
     Dosage: 20 MG, 2X/DAY
     Route: 048
     Dates: start: 20160713
  6. LANTUS [Concomitant]
     Active Substance: INSULIN GLARGINE
     Dosage: 45 IU, 2X/DAY
     Route: 058
     Dates: start: 20160816
  7. CYCLOBENZAPRINE. [Concomitant]
     Active Substance: CYCLOBENZAPRINE
     Indication: MUSCLE SPASMS
     Dosage: 10 MG, AS NEEDED (EVERY 8 HOURS AS NEEDED )
     Route: 048
  8. VITAMIN D3 [Concomitant]
     Active Substance: CHOLECALCIFEROL
     Dosage: 2000 IU, DAILY
     Route: 048
  9. COREG [Concomitant]
     Active Substance: CARVEDILOL
     Dosage: 3.125 MG, 2X/DAY
     Route: 048
     Dates: start: 20160512
  10. METFORMIN [Concomitant]
     Active Substance: METFORMIN HYDROCHLORIDE
     Dosage: 1000 MG, 2X/DAY (2 TIMES PER DAY WITH MORNING AND EVENING MEALS)
     Route: 048
     Dates: start: 20160607

REACTIONS (1)
  - Pain [Unknown]
